FAERS Safety Report 25312583 (Version 5)
Quarter: 2025Q3

REPORT INFORMATION
  Report Type: Spontaneous
  Country: EU (occurrence: EU)
  Receive Date: 20250514
  Receipt Date: 20250904
  Transmission Date: 20251021
  Serious: Yes (Other)
  Sender: PFIZER
  Company Number: EU-ROCHE-10000222767

PATIENT
  Age: 57 Year
  Sex: Male
  Weight: 72 kg

DRUGS (7)
  1. RUXIENCE [Suspect]
     Active Substance: RITUXIMAB-PVVR
     Indication: Lymphoma
     Route: 065
     Dates: start: 20240617
  2. RUXIENCE [Suspect]
     Active Substance: RITUXIMAB-PVVR
     Indication: Follicular lymphoma
  3. MABTHERA [Suspect]
     Active Substance: RITUXIMAB
     Indication: Lymphoma
     Dosage: 1400 MG, WEEKLY
     Route: 058
     Dates: start: 20240624
  4. MABTHERA [Suspect]
     Active Substance: RITUXIMAB
     Indication: Follicular lymphoma
     Dosage: UNK, WEEKLY
     Route: 058
     Dates: start: 20240701
  5. MABTHERA [Suspect]
     Active Substance: RITUXIMAB
     Dosage: UNK, WEEKLY
     Route: 058
     Dates: start: 20240708
  6. PROPOFOL [Concomitant]
     Active Substance: PROPOFOL
     Indication: Diarrhoea
     Route: 042
  7. PROPOFOL [Concomitant]
     Active Substance: PROPOFOL
     Route: 042

REACTIONS (15)
  - Syncope [Not Recovered/Not Resolved]
  - Thrombotic thrombocytopenic purpura [Unknown]
  - Gastrointestinal lymphoma [Not Recovered/Not Resolved]
  - Malignant neoplasm progression [Not Recovered/Not Resolved]
  - Gastrointestinal disorder [Not Recovered/Not Resolved]
  - Burning sensation [Not Recovered/Not Resolved]
  - Arthritis [Not Recovered/Not Resolved]
  - Muscle spasms [Recovered/Resolved]
  - Immune system disorder [Not Recovered/Not Resolved]
  - Renal cyst [Unknown]
  - Benign prostatic hyperplasia [Unknown]
  - Hordeolum [Unknown]
  - Bronchitis [Not Recovered/Not Resolved]
  - Cough [Not Recovered/Not Resolved]
  - Insomnia [Not Recovered/Not Resolved]

NARRATIVE: CASE EVENT DATE: 20240708
